FAERS Safety Report 9257064 (Version 3)
Quarter: 2013Q3

REPORT INFORMATION
  Report Type: Spontaneous
  Country: JP (occurrence: None)
  Receive Date: 20130423
  Receipt Date: 20130814
  Transmission Date: 20140515
  Serious: Yes (Life-Threatening, Hospitalization)
  Sender: FDA-Public Use
  Company Number: TCI2013A02206

PATIENT
  Age: 65 Year
  Sex: Female

DRUGS (2)
  1. NESINA [Suspect]
     Indication: DIABETES MELLITUS
     Route: 048
     Dates: start: 20130301, end: 20130305
  2. LANTUS (INSULIN GLARGINE) [Concomitant]

REACTIONS (7)
  - Oculomucocutaneous syndrome [None]
  - Rash [None]
  - Renal disorder [None]
  - Disseminated intravascular coagulation [None]
  - Stevens-Johnson syndrome [None]
  - Dialysis [None]
  - Blood creatinine increased [None]
